FAERS Safety Report 10451655 (Version 2)
Quarter: 2014Q3

REPORT INFORMATION
  Report Type: Report from Study
  Country: PE (occurrence: PE)
  Receive Date: 20140914
  Receipt Date: 20140914
  Transmission Date: 20150326
  Serious: Yes (Hospitalization)
  Sender: FDA-Public Use
  Company Number: PE-ROCHE-1455367

PATIENT
  Age: 13 Year
  Sex: Male

DRUGS (1)
  1. PULMOZYME [Suspect]
     Active Substance: DORNASE ALFA
     Indication: CYSTIC FIBROSIS
     Dosage: 2.5 MG / 2.5 ML
     Route: 048
     Dates: start: 20130630, end: 20140907

REACTIONS (4)
  - Agitation [Recovering/Resolving]
  - Pneumococcal infection [Recovering/Resolving]
  - Insomnia [Recovering/Resolving]
  - Cough [Recovering/Resolving]

NARRATIVE: CASE EVENT DATE: 20140819
